FAERS Safety Report 8054398-6 (Version None)
Quarter: 2012Q1

REPORT INFORMATION
  Report Type: 
  Country: None (occurrence: None)
  Receive Date: 20120118
  Receipt Date: 20120109
  Transmission Date: 20120608
  Serious: Yes (Other)
  Sender: FDA-Public Use
  Company Number: US-BAYER-201032259NA

PATIENT
  Age: 59 Year
  Sex: Male
  Weight: 99.773 kg

DRUGS (32)
  1. OPTIMARK [Suspect]
     Indication: NUCLEAR MAGNETIC RESONANCE IMAGING
  2. GADOLINIUM IN UNSPECIFIED DRUG [Suspect]
     Dosage: UNK
     Dates: start: 20041229, end: 20041229
  3. ACYCLOVIR [Concomitant]
  4. MIDODRINE HYDROCHLORIDE [Concomitant]
  5. CARDURA [Concomitant]
  6. INDERAL [Concomitant]
  7. HECTOROL [Concomitant]
  8. MAGNEVIST [Suspect]
     Indication: NUCLEAR MAGNETIC RESONANCE IMAGING
  9. GADOLINIUM IN UNSPECIFIED DRUG [Suspect]
     Indication: NUCLEAR MAGNETIC RESONANCE IMAGING BRAIN
     Dosage: UNK
     Dates: start: 19960906, end: 19960906
  10. NPH INSULIN [Concomitant]
  11. PREDNISONE [Concomitant]
  12. FOSRENOL [Concomitant]
  13. GADOLINIUM IN UNSPECIFIED DRUG [Suspect]
     Dosage: UNK
     Dates: start: 20030711, end: 20030711
  14. IRON SUPPLEMENT [Concomitant]
  15. MULTIHANCE [Suspect]
     Indication: NUCLEAR MAGNETIC RESONANCE IMAGING
  16. PROHANCE [Suspect]
     Indication: NUCLEAR MAGNETIC RESONANCE IMAGING
  17. NEPHROCAPS [Concomitant]
  18. PHOSLO [Concomitant]
  19. OMNISCAN [Suspect]
     Indication: NUCLEAR MAGNETIC RESONANCE IMAGING BRAIN
     Dosage: 40 ML, ONCE
     Route: 042
     Dates: start: 20060330, end: 20060330
  20. FLUCONAZOLE [Concomitant]
  21. ENBREL [Concomitant]
  22. RYTHMOL [Concomitant]
  23. OMNISCAN [Suspect]
     Indication: NUCLEAR MAGNETIC RESONANCE IMAGING ABDOMINAL
     Dosage: 20 ML, ONCE
     Route: 042
     Dates: start: 20060512, end: 20060512
  24. GADOLINIUM IN UNSPECIFIED DRUG [Suspect]
     Indication: ANGIOGRAM
     Dosage: UNK
     Dates: start: 20030703, end: 20030703
  25. METOPROLOL [Concomitant]
  26. QUININE SULFATE [Concomitant]
  27. DIOVAN [Concomitant]
  28. VENOFER [Concomitant]
  29. EPOGEN [Concomitant]
  30. ERGOCALCIFEROL [Concomitant]
  31. ESOMEPRAZOLE SODIUM [Concomitant]
  32. CARDIZEM [Concomitant]

REACTIONS (16)
  - MUSCULOSKELETAL STIFFNESS [None]
  - RASH [None]
  - PAIN [None]
  - MOBILITY DECREASED [None]
  - SKIN PLAQUE [None]
  - ARTHRALGIA [None]
  - NEPHROGENIC SYSTEMIC FIBROSIS [None]
  - ERYTHEMA [None]
  - SCLERODERMA [None]
  - SKIN TIGHTNESS [None]
  - PLEURAL FIBROSIS [None]
  - SKIN INDURATION [None]
  - HYPOAESTHESIA [None]
  - SUBCUTANEOUS NODULE [None]
  - GAIT DISTURBANCE [None]
  - SKIN HYPERPIGMENTATION [None]
